FAERS Safety Report 25757355 (Version 2)
Quarter: 2025Q4

REPORT INFORMATION
  Report Type: Spontaneous
  Country: JP (occurrence: JP)
  Receive Date: 20250903
  Receipt Date: 20251006
  Transmission Date: 20260118
  Serious: Yes (Other)
  Sender: BRISTOL-MYERS SQUIBB COMPANY
  Company Number: JP-TAIHO-2025-009168

PATIENT
  Age: 8 Decade
  Sex: Male
  Weight: 68 kg

DRUGS (2)
  1. ABRAXANE [Suspect]
     Active Substance: PACLITAXEL
     Indication: Pancreatic carcinoma
     Dosage: 200 MG/DAY, DETAILS NOT REPORTED?DAILY DOSE: 200 MILLIGRAM(S)
  2. GEMCITABINE HYDROCHLORIDE [Concomitant]
     Active Substance: GEMCITABINE HYDROCHLORIDE
     Indication: Pancreatic carcinoma
     Dosage: NI

REACTIONS (1)
  - Macular oedema [Recovering/Resolving]

NARRATIVE: CASE EVENT DATE: 20250617
